FAERS Safety Report 13520320 (Version 7)
Quarter: 2018Q2

REPORT INFORMATION
  Report Type: Report from Study
  Country: CA (occurrence: CA)
  Receive Date: 20170507
  Receipt Date: 20180406
  Transmission Date: 20180711
  Serious: Yes (Other)
  Sender: FDA-Public Use
  Company Number: CA-AMGEN-CANSL2017067044

PATIENT
  Age: 49 Year
  Sex: Female

DRUGS (8)
  1. OMNARIS [Concomitant]
     Active Substance: CICLESONIDE
     Indication: SINUS DISORDER
     Dosage: UNK
  2. VITAMIN B12 [Concomitant]
     Active Substance: CYANOCOBALAMIN
     Dosage: UNK
  3. VITAMIN D [Concomitant]
     Active Substance: CHOLECALCIFEROL
     Dosage: UNK
  4. REPATHA [Suspect]
     Active Substance: EVOLOCUMAB
     Indication: PRODUCT USED FOR UNKNOWN INDICATION
     Dosage: UNK
     Route: 065
  5. CELEBREX [Concomitant]
     Active Substance: CELECOXIB
     Indication: PAIN
     Dosage: UNK
  6. ENBREL [Suspect]
     Active Substance: ETANERCEPT
     Indication: RHEUMATOID ARTHRITIS
     Dosage: 50 MG, UNK
     Route: 065
     Dates: start: 20161008, end: 201612
  7. ENBREL [Suspect]
     Active Substance: ETANERCEPT
     Dosage: 50 MG, UNK
     Route: 065
     Dates: start: 2017, end: 201801
  8. TYLENOL ARTHRITIS PAIN [Concomitant]
     Active Substance: ACETAMINOPHEN
     Indication: PAIN
     Dosage: UNK

REACTIONS (32)
  - Mental impairment [Unknown]
  - Ligament rupture [Unknown]
  - Arthritis [Unknown]
  - Skin atrophy [Unknown]
  - Adverse drug reaction [Unknown]
  - Vertigo [Recovered/Resolved]
  - Pain [Unknown]
  - Scratch [Unknown]
  - Food allergy [Unknown]
  - Nausea [Unknown]
  - Bradyphrenia [Recovering/Resolving]
  - Haemorrhagic diathesis [Recovering/Resolving]
  - Attention deficit/hyperactivity disorder [Recovering/Resolving]
  - Epistaxis [Not Recovered/Not Resolved]
  - Impaired healing [Unknown]
  - Memory impairment [Unknown]
  - Joint destruction [Unknown]
  - Dizziness [Unknown]
  - Feeling abnormal [Recovering/Resolving]
  - Rash [Not Recovered/Not Resolved]
  - Muscle strain [Unknown]
  - Confusional state [Recovered/Resolved]
  - Dust allergy [Unknown]
  - Nasopharyngitis [Unknown]
  - Quality of life decreased [Unknown]
  - Wound [Unknown]
  - Allergy to animal [Unknown]
  - Sinusitis [Unknown]
  - Musculoskeletal stiffness [Unknown]
  - Thinking abnormal [Recovering/Resolving]
  - Nasal septum deviation [Unknown]
  - Skin haemorrhage [Recovering/Resolving]

NARRATIVE: CASE EVENT DATE: 201612
